FAERS Safety Report 9333638 (Version 2)
Quarter: 2013Q2

REPORT INFORMATION
  Report Type: Report from Study
  Country: US (occurrence: US)
  Receive Date: 20130606
  Receipt Date: 20130628
  Transmission Date: 20140414
  Serious: Yes (Hospitalization)
  Sender: FDA-Public Use
  Company Number: US-ABBOTT-13P-163-1098548-00

PATIENT
  Age: 21 Year
  Sex: Female
  Weight: 73.55 kg

DRUGS (6)
  1. HUMIRA [Suspect]
     Indication: COLITIS ULCERATIVE
     Route: 058
     Dates: start: 20130304
  2. ADDERALL [Concomitant]
     Indication: NARCOLEPSY
  3. NUVIGIL [Concomitant]
     Indication: NARCOLEPSY
  4. LYRICA [Concomitant]
     Indication: FIBROMYALGIA
  5. CYMBALTA [Concomitant]
     Indication: FIBROMYALGIA
  6. NEXIUM [Concomitant]
     Indication: PRODUCT USED FOR UNKNOWN INDICATION

REACTIONS (23)
  - Pyrexia [Recovering/Resolving]
  - Feeling cold [Recovering/Resolving]
  - Gastritis [Recovering/Resolving]
  - Pain [Unknown]
  - Abdominal pain [Not Recovered/Not Resolved]
  - Back pain [Not Recovered/Not Resolved]
  - Crying [Unknown]
  - Pain [Unknown]
  - Generalised oedema [Unknown]
  - Nausea [Unknown]
  - Urinary tract infection [Unknown]
  - Malaise [Recovering/Resolving]
  - Feeling cold [Recovering/Resolving]
  - Pyrexia [Recovering/Resolving]
  - Productive cough [Not Recovered/Not Resolved]
  - Sputum discoloured [Not Recovered/Not Resolved]
  - Pain [Recovering/Resolving]
  - Nausea [Recovering/Resolving]
  - Sinus headache [Recovering/Resolving]
  - Otorrhoea [Recovering/Resolving]
  - Sinus headache [Not Recovered/Not Resolved]
  - Cough [Not Recovered/Not Resolved]
  - Sleep disorder [Unknown]
